FAERS Safety Report 21444940 (Version 1)
Quarter: 2022Q4

REPORT INFORMATION
  Report Type: Spontaneous
  Country: NL (occurrence: NL)
  Receive Date: 20221012
  Receipt Date: 20221012
  Transmission Date: 20230113
  Serious: Yes (Life-Threatening, Hospitalization)
  Sender: FDA-Public Use
  Company Number: None

PATIENT
  Sex: Female
  Weight: 60.5 kg

DRUGS (10)
  1. HALDOL [Suspect]
     Active Substance: HALOPERIDOL
     Indication: Restlessness
     Dosage: 2 X PER DAG 1 STUK
     Route: 065
     Dates: start: 20220707, end: 20220913
  2. ENALAPRIL 10mg - TABLET [Concomitant]
     Dosage: TABLET, 10 MG (MILLIGRAM)
  3. RHINOCORT NEVEL 32 MICROGRAM PER DOSIS [Concomitant]
     Dosage: NEUSSPRAY, 32 UG/DOSIS (MICROGRAM PER DOSIS)
  4. TRAZODONE 100 mg - TABLET [Concomitant]
     Dosage: TABLET, 100 MG (MILLIGRAM)
  5. Volcolon-Suikervrij GRANULAAT [Concomitant]
     Dosage: ZAKJE (GRANULAAT), 3,6 G (GRAM)
  6. Akineton 2 mg - Tabletten [Concomitant]
     Dosage: TABLET, 2 MG (MILLIGRAM)
  7. PARACETAMOL 1000 mg - TABLET [Concomitant]
     Dosage: TABLET, 1000 MG (MILLIGRAM)
  8. LORAZEPAM 0.5mg - TABLET [Concomitant]
     Dosage: TABLET, 0,5 MG (MILLIGRAM)
  9. QUETIAPINE 12.5mg Tablet [Concomitant]
     Dosage: TABLET, 12,5 MG (MILLIGRAM)
  10. MIRTAZAPINE - TABLET [Concomitant]
     Dosage: TABLET, 3,75 MG (MILLIGRAM)

REACTIONS (2)
  - Rhabdomyolysis [Recovered/Resolved]
  - Muscle rigidity [Recovered/Resolved]
